FAERS Safety Report 12725522 (Version 5)
Quarter: 2017Q1

REPORT INFORMATION
  Report Type: Spontaneous
  Country: US (occurrence: US)
  Receive Date: 20160908
  Receipt Date: 20170119
  Transmission Date: 20170428
  Serious: Yes (Other)
  Sender: FDA-Public Use
  Company Number: US-PFIZER INC-2016423080

PATIENT
  Age: 58 Year
  Sex: Female

DRUGS (2)
  1. XELJANZ [Suspect]
     Active Substance: TOFACITINIB CITRATE
     Indication: CHOLELITHIASIS
     Dosage: 5 MG, UNK
  2. PREDNISONE. [Concomitant]
     Active Substance: PREDNISONE
     Dosage: 5 MG, UNK

REACTIONS (8)
  - Pain [Unknown]
  - Rheumatoid arthritis [Unknown]
  - Eye haemorrhage [Unknown]
  - Drug effect decreased [Unknown]
  - Product use issue [Unknown]
  - Intentional product misuse [Unknown]
  - Scleritis [Unknown]
  - Cataract [Unknown]

NARRATIVE: CASE EVENT DATE: 201609
